FAERS Safety Report 7099808-6 (Version None)
Quarter: 2010Q4

REPORT INFORMATION
  Report Type: 
  Country: None (occurrence: None)
  Receive Date: 20101112
  Receipt Date: 20101105
  Transmission Date: 20110411
  Serious: Yes (Death, Hospitalization)
  Sender: FDA-Public Use
  Company Number: AU-PFIZER INC-2010118927

PATIENT
  Age: 74 Year
  Sex: Male

DRUGS (11)
  1. LYRICA [Suspect]
     Indication: NEURALGIA
     Dosage: 150 MG, 2X/DAY
     Route: 048
     Dates: start: 20040516
  2. LYRICA [Suspect]
     Dosage: 300 MG, 2X/DAY
     Route: 048
     Dates: start: 20060407
  3. HIPREX [Concomitant]
     Indication: URINARY TRACT INFECTION
     Dosage: 1 G, 2X/DAY
     Route: 048
     Dates: start: 20020101, end: 20090918
  4. METFORMIN [Concomitant]
     Indication: DIABETES MELLITUS
     Dosage: 500 MG, 2X/DAY
     Route: 048
     Dates: end: 20090918
  5. DITROPAN [Concomitant]
     Indication: BLADDER DYSFUNCTION
     Dosage: 5 MG, 2X/DAY
     Route: 048
     Dates: start: 20020101, end: 20090918
  6. TRAMADOL HCL [Concomitant]
     Indication: PAIN
     Dosage: 200MG MORNING, 100MG NIGHT
     Route: 048
     Dates: start: 20020101, end: 20090918
  7. ENDEP [Concomitant]
     Indication: DEPRESSION
     Dosage: 12.5MG AM, 37.5MG PM
     Route: 048
     Dates: start: 20020101, end: 20090918
  8. ENDEP [Concomitant]
     Indication: PAIN
  9. BACLOFEN [Concomitant]
     Indication: MUSCLE SPASMS
     Dosage: 10 MG, 1X/DAY
     Route: 048
     Dates: start: 20020101, end: 20090918
  10. NULYTELY [Concomitant]
     Indication: INTESTINAL FUNCTIONAL DISORDER
     Dosage: 2 SACHETS, 1X/DAY
     Route: 048
     Dates: start: 20020101, end: 20090918
  11. COLOXYL WITH SENNA [Concomitant]
     Indication: INTESTINAL FUNCTIONAL DISORDER
     Dosage: 1 SACHET 3X/DAY
     Route: 048
     Dates: start: 20020101, end: 20090918

REACTIONS (2)
  - PNEUMONIA [None]
  - RESPIRATORY FAILURE [None]
